FAERS Safety Report 9423831 (Version 1)
Quarter: 2013Q3

REPORT INFORMATION
  Report Type: Spontaneous
  Country: AU (occurrence: AU)
  Receive Date: 20130729
  Receipt Date: 20130729
  Transmission Date: 20140515
  Serious: Yes (Other)
  Sender: FDA-Public Use
  Company Number: AU-PFIZER INC-2013215560

PATIENT
  Age: 13 Year
  Sex: Female

DRUGS (4)
  1. HYDROCORTISONE SODIUM SUCCINATE [Suspect]
     Indication: ADDISON^S DISEASE
     Dosage: 100 MG, 4X/DAY
     Route: 042
  2. HYDROCORTISONE SODIUM SUCCINATE [Suspect]
     Indication: ADRENAL INSUFFICIENCY
  3. FLUDROCORTISONE [Suspect]
     Indication: ADDISON^S DISEASE
     Dosage: 100 UG, 2X/DAY
     Route: 048
  4. FLUDROCORTISONE [Suspect]
     Indication: ADRENAL INSUFFICIENCY

REACTIONS (4)
  - Cardiac failure congestive [Recovering/Resolving]
  - Respiratory distress [Recovering/Resolving]
  - Pulmonary oedema [Recovering/Resolving]
  - Hypotension [Recovering/Resolving]
